FAERS Safety Report 16385492 (Version 6)
Quarter: 2020Q2

REPORT INFORMATION
  Report Type: Spontaneous
  Country: US (occurrence: US)
  Receive Date: 20190603
  Receipt Date: 20200520
  Transmission Date: 20200713
  Serious: Yes (Other)
  Sender: FDA-Public Use
  Company Number: US-PFIZER INC-2019233099

PATIENT
  Age: 57 Year
  Sex: Female
  Weight: 83 kg

DRUGS (2)
  1. IBRANCE [Suspect]
     Active Substance: PALBOCICLIB
     Indication: BREAST CANCER METASTATIC
     Dosage: 100 MG, CYCLIC [100MG CAPSULE, ONCE DAILY FOR 21 DAYS, THEN OFF FOR 7 DAYS]
     Dates: start: 201905
  2. LETROZOLE. [Concomitant]
     Active Substance: LETROZOLE
     Indication: BREAST CANCER FEMALE
     Dosage: 2.5 MG, 1X/DAY [2.5MG ONCE DAILY]

REACTIONS (9)
  - Drug dependence [Unknown]
  - Hypokinesia [Unknown]
  - Fall [Unknown]
  - Body height decreased [Unknown]
  - Tumour marker decreased [Unknown]
  - Hair texture abnormal [Unknown]
  - Weight increased [Unknown]
  - Alopecia [Unknown]
  - Dyspnoea [Unknown]

NARRATIVE: CASE EVENT DATE: 202004
